FAERS Safety Report 19997443 (Version 1)
Quarter: 2021Q4

REPORT INFORMATION
  Report Type: Spontaneous
  Country: DE (occurrence: DE)
  Receive Date: 20211026
  Receipt Date: 20211026
  Transmission Date: 20220303
  Serious: Yes (Other)
  Sender: FDA-Public Use
  Company Number: DE-TEVA-2021-DE-1969065

PATIENT
  Sex: Male

DRUGS (5)
  1. TORSEMIDE [Suspect]
     Active Substance: TORSEMIDE
     Indication: Fluid retention
     Dosage: AT START OF THERAPY AS REQUIRED
     Route: 048
     Dates: start: 2015
  2. TORSEMIDE [Suspect]
     Active Substance: TORSEMIDE
     Dosage: 10 MILLIGRAM DAILY; 0.5-0-0.5 ALREADY FOR A LONGER TIME
     Route: 048
  3. ENTRESTO [Concomitant]
     Active Substance: SACUBITRIL\VALSARTAN
  4. EPLERENONE [Concomitant]
     Active Substance: EPLERENONE
  5. METOPROLOL [Concomitant]
     Active Substance: METOPROLOL

REACTIONS (20)
  - Escherichia urinary tract infection [Unknown]
  - Citrobacter infection [Unknown]
  - Staphylococcal infection [Unknown]
  - Clostridium difficile infection [Unknown]
  - Haemorrhage [Unknown]
  - Photosensitivity reaction [Recovering/Resolving]
  - Immune system disorder [Unknown]
  - Pruritus [Recovering/Resolving]
  - Urticaria pigmentosa [Recovering/Resolving]
  - Lymphocyte count decreased [Unknown]
  - Drug hypersensitivity [Unknown]
  - Inflammatory marker increased [Not Recovered/Not Resolved]
  - B-lymphocyte count abnormal [Unknown]
  - T-lymphocyte count decreased [Unknown]
  - CD4 lymphocytes decreased [Unknown]
  - CD8 lymphocytes decreased [Unknown]
  - CD4/CD8 ratio increased [Unknown]
  - Hair metal test abnormal [Unknown]
  - Gastrointestinal mucosal disorder [Unknown]
  - Inflammation [Unknown]

NARRATIVE: CASE EVENT DATE: 20190101
